FAERS Safety Report 7532594-1 (Version None)
Quarter: 2011Q2

REPORT INFORMATION
  Report Type: 
  Country: None (occurrence: None)
  Receive Date: 20110608
  Receipt Date: 20110602
  Transmission Date: 20111010
  Serious: Yes (Death, Disabling)
  Sender: FDA-Public Use
  Company Number: PHHY2011JP06751

PATIENT
  Age: 60 Year
  Sex: Female
  Weight: 45 kg

DRUGS (2)
  1. TRASTUZUMAB [Concomitant]
     Indication: BREAST CANCER
     Route: 042
  2. ZOMETA [Suspect]
     Indication: METASTASES TO BONE
     Route: 042

REACTIONS (9)
  - GINGIVAL ERYTHEMA [None]
  - GINGIVAL SWELLING [None]
  - EXPOSED BONE IN JAW [None]
  - GINGIVAL DISORDER [None]
  - PAIN IN JAW [None]
  - OSTEONECROSIS OF JAW [None]
  - JAW DISORDER [None]
  - BREAST CANCER [None]
  - CONTACT STOMATITIS [None]
